FAERS Safety Report 11481371 (Version 1)
Quarter: 2015Q3

REPORT INFORMATION
  Report Type: Spontaneous
  Country: US (occurrence: None)
  Receive Date: 20150909
  Receipt Date: 20150909
  Transmission Date: 20151125
  Serious: Yes (Other)
  Sender: FDA-Public Use
  Company Number: ADR-2015-01557

PATIENT
  Age: 50 Year
  Sex: Male

DRUGS (2)
  1. BUPIVACAINE (INTRATHECAL) 7.5MG/ML [Suspect]
     Active Substance: BUPIVACAINE
     Dosage: 0.7505 MG/DAY
  2. BACLOFEN INTRATHECAL 500MCG/ML [Suspect]
     Active Substance: BACLOFEN
     Indication: MUSCLE SPASTICITY
     Dosage: 50.04MCG/DAY

REACTIONS (2)
  - Pain [None]
  - Muscle spasticity [None]
